FAERS Safety Report 6545728-2 (Version None)
Quarter: 2010Q1

REPORT INFORMATION
  Report Type: 
  Country: None (occurrence: None)
  Receive Date: 20100121
  Receipt Date: 20100119
  Transmission Date: 20100710
  Serious: Yes (Life-Threatening, Other)
  Sender: FDA-Public Use
  Company Number: JP-B.I. PHARMACEUTICALS,INC./RIDGEFIELD-2010-BP-00443NB

PATIENT
  Sex: Female
  Weight: 57.1 kg

DRUGS (5)
  1. MICARDIS [Suspect]
     Indication: HYPERTENSION
     Dosage: 40 MG
     Route: 048
     Dates: start: 20060904
  2. MICARDIS [Suspect]
     Dosage: 80 MG
     Route: 048
     Dates: start: 20061023, end: 20090309
  3. LEVEMIR [Concomitant]
     Dosage: 24 U
     Route: 058
     Dates: start: 20080422
  4. MEVALOTIN [Concomitant]
     Dosage: 20 MG
     Route: 048
     Dates: start: 20060101
  5. ADALT-CR [Concomitant]
     Dosage: 40 MG
     Route: 048
     Dates: start: 20060101

REACTIONS (1)
  - HYPERKALAEMIA [None]
